FAERS Safety Report 18896244 (Version 2)
Quarter: 2021Q1

REPORT INFORMATION
  Report Type: Report from Study
  Country: JP (occurrence: JP)
  Receive Date: 20210216
  Receipt Date: 20210312
  Transmission Date: 20210420
  Serious: Yes (Hospitalization)
  Sender: FDA-Public Use
  Company Number: JP-CELLTRION INC.-2021JP001688

PATIENT

DRUGS (24)
  1. TRASTUZUMAB BS FOR I.V. INFUSION [NK] [Suspect]
     Active Substance: TRASTUZUMAB
     Indication: HER2 POSITIVE GASTRIC CANCER
     Dosage: 340 MG, QD
     Route: 041
     Dates: start: 20191218, end: 20191218
  2. TRASTUZUMAB BS FOR I.V. INFUSION [NK] [Suspect]
     Active Substance: TRASTUZUMAB
     Dosage: 270 MG, QD
     Route: 041
     Dates: start: 20200401, end: 20200401
  3. CISPLATIN. [Suspect]
     Active Substance: CISPLATIN
     Dosage: 80 MILLIGRAM, QD
     Route: 041
     Dates: start: 20200422, end: 20200422
  4. NEXIUM [Concomitant]
     Active Substance: ESOMEPRAZOLE MAGNESIUM
     Indication: HER2 POSITIVE GASTRIC CANCER
     Dosage: UNK
     Dates: start: 20191129, end: 20200508
  5. TRASTUZUMAB BS FOR I.V. INFUSION [NK] [Suspect]
     Active Substance: TRASTUZUMAB
     Dosage: 270 MG, QD
     Route: 041
     Dates: start: 20200311, end: 20200311
  6. TRASTUZUMAB BS FOR I.V. INFUSION [NK] [Suspect]
     Active Substance: TRASTUZUMAB
     Dosage: 270 MG, QD
     Route: 041
     Dates: start: 20200422, end: 20200422
  7. CAPECITABINE. [Suspect]
     Active Substance: CAPECITABINE
     Dosage: 2400 MILLIGRAM, QD
     Route: 048
     Dates: start: 20200401, end: 20200415
  8. HYALURONATE NA [Concomitant]
     Active Substance: HYALURONATE SODIUM
     Indication: CATARACT
     Dosage: UNK
  9. TRASTUZUMAB BS FOR I.V. INFUSION [NK] [Suspect]
     Active Substance: TRASTUZUMAB
     Dosage: 270 MG, QD
     Route: 041
     Dates: start: 20200219, end: 20200219
  10. CAPECITABINE. [Suspect]
     Active Substance: CAPECITABINE
     Dosage: 2400 MILLIGRAM, QD
     Route: 048
     Dates: start: 20200219, end: 20200304
  11. CAPECITABINE. [Suspect]
     Active Substance: CAPECITABINE
     Dosage: 2400 MILLIGRAM, QD
     Route: 048
     Dates: start: 20200311, end: 20200325
  12. TRASTUZUMAB BS FOR I.V. INFUSION [NK] [Suspect]
     Active Substance: TRASTUZUMAB
     Dosage: 270 MG, QD
     Route: 041
     Dates: start: 20200129, end: 20200129
  13. CISPLATIN. [Suspect]
     Active Substance: CISPLATIN
     Dosage: 80 MILLIGRAM, QD
     Route: 041
     Dates: start: 20200129, end: 20200129
  14. CISPLATIN. [Suspect]
     Active Substance: CISPLATIN
     Dosage: 80 MILLIGRAM, QD
     Route: 041
     Dates: start: 20200311, end: 20200311
  15. CAPECITABINE. [Suspect]
     Active Substance: CAPECITABINE
     Indication: HER2 POSITIVE GASTRIC CANCER
     Dosage: 2400 MILLIGRAM, QD
     Route: 048
     Dates: start: 20191218, end: 20200101
  16. CAPECITABINE. [Suspect]
     Active Substance: CAPECITABINE
     Dosage: 2400 MILLIGRAM, QD
     Route: 048
     Dates: start: 20200129, end: 20200212
  17. CISPLATIN. [Suspect]
     Active Substance: CISPLATIN
     Indication: HER2 POSITIVE GASTRIC CANCER
     Dosage: 100 MILLIGRAM, QD
     Route: 041
     Dates: start: 20191218, end: 20191218
  18. CISPLATIN. [Suspect]
     Active Substance: CISPLATIN
     Dosage: 80 MILLIGRAM, QD
     Route: 041
     Dates: start: 20200401, end: 20200401
  19. CAPECITABINE. [Suspect]
     Active Substance: CAPECITABINE
     Dosage: 2400 MILLIGRAM, QD
     Route: 048
     Dates: start: 20200108, end: 20200122
  20. CISPLATIN. [Suspect]
     Active Substance: CISPLATIN
     Dosage: 80 MILLIGRAM, QD
     Route: 041
     Dates: start: 20200108, end: 20200108
  21. CAPECITABINE. [Suspect]
     Active Substance: CAPECITABINE
     Dosage: 2400 MILLIGRAM, QD
     Route: 048
     Dates: start: 20200422, end: 20200505
  22. MIKELAN LA [Concomitant]
     Active Substance: CARTEOLOL HYDROCHLORIDE
     Indication: GLAUCOMA
     Dosage: UNK
  23. TRASTUZUMAB BS FOR I.V. INFUSION [NK] [Suspect]
     Active Substance: TRASTUZUMAB
     Dosage: 270 MG, QD
     Route: 041
     Dates: start: 20200108, end: 20200108
  24. CISPLATIN. [Suspect]
     Active Substance: CISPLATIN
     Dosage: 80 MILLIGRAM, QD
     Route: 041
     Dates: start: 20200219, end: 20200219

REACTIONS (13)
  - Underdose [Unknown]
  - Liver disorder [Unknown]
  - Skin hyperpigmentation [Not Recovered/Not Resolved]
  - Taste disorder [Not Recovered/Not Resolved]
  - Overdose [Unknown]
  - Disseminated intravascular coagulation [Recovered/Resolved]
  - Infection [Unknown]
  - Anaemia [Not Recovered/Not Resolved]
  - Haematotoxicity [Unknown]
  - Bacteraemia [Recovered/Resolved]
  - Nausea [Recovered/Resolved]
  - Palmar-plantar erythrodysaesthesia syndrome [Not Recovered/Not Resolved]
  - Renal disorder [Unknown]

NARRATIVE: CASE EVENT DATE: 20191227
